FAERS Safety Report 7091412-9 (Version None)
Quarter: 2010Q4

REPORT INFORMATION
  Report Type: 
  Country: None (occurrence: None)
  Receive Date: 20101109
  Receipt Date: 20101029
  Transmission Date: 20110411
  Serious: Yes (Other)
  Sender: FDA-Public Use
  Company Number: B0680476A

PATIENT
  Sex: Male

DRUGS (3)
  1. WELLBUTRIN [Suspect]
     Route: 065
  2. TRAZODONE HCL [Concomitant]
     Route: 065
  3. TRESLEEN [Concomitant]
     Route: 065

REACTIONS (6)
  - AGITATION [None]
  - DEPRESSED LEVEL OF CONSCIOUSNESS [None]
  - FLATULENCE [None]
  - HYPOTONIA [None]
  - INSOMNIA [None]
  - VERTIGO [None]
